FAERS Safety Report 12873456 (Version 1)
Quarter: 2016Q4

REPORT INFORMATION
  Report Type: Spontaneous
  Country: US (occurrence: US)
  Receive Date: 20161021
  Receipt Date: 20161021
  Transmission Date: 20170207
  Serious: No
  Sender: FDA-Public Use
  Company Number: US-CELGENEUS-USA-2016097689

PATIENT
  Sex: Female

DRUGS (2)
  1. OTEZLA [Suspect]
     Active Substance: APREMILAST
     Indication: PRODUCT USED FOR UNKNOWN INDICATION
     Route: 048
     Dates: end: 2016
  2. ANTIBIOTICS [Concomitant]
     Active Substance: UNSPECIFIED INGREDIENT
     Indication: RESPIRATORY TRACT INFECTION
     Route: 065

REACTIONS (9)
  - Respiratory tract infection [Unknown]
  - Gambling [Unknown]
  - Compulsive shopping [Unknown]
  - Diarrhoea [Unknown]
  - Swollen tongue [Unknown]
  - Wheezing [Unknown]
  - Weight decreased [Unknown]
  - Chest discomfort [Unknown]
  - Depression [Unknown]
